FAERS Safety Report 19683512 (Version 1)
Quarter: 2021Q3

REPORT INFORMATION
  Report Type: Spontaneous
  Country: US (occurrence: US)
  Receive Date: 20210810
  Receipt Date: 20210810
  Transmission Date: 20211014
  Serious: Yes (Other)
  Sender: FDA-Public Use
  Company Number: US-GILEAD-2021-0543539

PATIENT
  Sex: Female

DRUGS (1)
  1. TRODELVY [Suspect]
     Active Substance: SACITUZUMAB GOVITECAN-HZIY
     Indication: TRIPLE NEGATIVE BREAST CANCER
     Dosage: UNK
     Route: 065

REACTIONS (8)
  - Vision blurred [Unknown]
  - Dry eye [Unknown]
  - Fatigue [Unknown]
  - Oral fungal infection [Recovering/Resolving]
  - Diarrhoea [Unknown]
  - Blood count abnormal [Recovered/Resolved]
  - Asthenia [Unknown]
  - Therapy partial responder [Unknown]
